FAERS Safety Report 8502044-7 (Version None)
Quarter: 2012Q3

REPORT INFORMATION
  Report Type: 
  Country: None (occurrence: None)
  Receive Date: 20120702
  Receipt Date: 20120614
  Transmission Date: 20120928
  Serious: Yes (Other)
  Sender: FDA-Public Use
  Company Number: 2011MA002706

PATIENT
  Sex: Male

DRUGS (16)
  1. CARISOPRODOL [Concomitant]
  2. TRAZODONE HYDROCHLORIDE [Concomitant]
  3. PREVACID [Concomitant]
  4. AMOXICILLIN [Concomitant]
  5. FLONASE [Concomitant]
  6. SINGULAIR [Concomitant]
  7. HYDROCODONE BITARTRATE AND ACETAMINOPHEN [Concomitant]
  8. FLUDROCORTISONE ACETATE [Concomitant]
  9. PHENYTOIN SODIUM [Concomitant]
  10. ERYTHROMYCIN [Concomitant]
  11. PROPRANOLOL [Concomitant]
  12. DILANTIN [Concomitant]
  13. AUGMENTIN '125' [Concomitant]
  14. METOCLOPRAMIDE [Suspect]
     Dosage: 10 MG;PO
     Route: 048
     Dates: start: 20000101, end: 20081201
  15. CELEXA [Concomitant]
  16. CYCLOBENAZPRINE [Concomitant]

REACTIONS (9)
  - TREMOR [None]
  - DYSTONIA [None]
  - AKATHISIA [None]
  - EMOTIONAL DISORDER [None]
  - INJURY [None]
  - FAMILY STRESS [None]
  - EXTRAPYRAMIDAL DISORDER [None]
  - TARDIVE DYSKINESIA [None]
  - ECONOMIC PROBLEM [None]
